FAERS Safety Report 11460449 (Version 1)
Quarter: 2015Q3

REPORT INFORMATION
  Report Type: Spontaneous
  Country: US (occurrence: US)
  Receive Date: 20150904
  Receipt Date: 20150904
  Transmission Date: 20151125
  Serious: Yes (Hospitalization, Other)
  Sender: FDA-Public Use
  Company Number: US-BAYER-2015-412136

PATIENT
  Age: 72 Year
  Sex: Female

DRUGS (1)
  1. BETASERON [Suspect]
     Active Substance: INTERFERON BETA-1B
     Indication: MULTIPLE SCLEROSIS
     Dosage: 0.3 MG, QOD
     Route: 058

REACTIONS (9)
  - Fall [None]
  - Limb discomfort [None]
  - Hyperhidrosis [None]
  - Dry mouth [None]
  - Breast cancer [None]
  - Head injury [None]
  - Dizziness [None]
  - Depressed mood [None]
  - Balance disorder [None]

NARRATIVE: CASE EVENT DATE: 2012
